FAERS Safety Report 6057865-X (Version None)
Quarter: 2009Q1

REPORT INFORMATION
  Report Type: 
  Country: None (occurrence: None)
  Receive Date: 20090126
  Receipt Date: 20090106
  Transmission Date: 20090719
  Serious: Yes (Death)
  Sender: FDA-Public Use
  Company Number: PAR_02601_2009

PATIENT
  Age: 58 Year
  Sex: Female

DRUGS (5)
  1. ZOLPIDEM [Suspect]
     Indication: DRUG USE FOR UNKNOWN INDICATION
     Dosage: 90 TOTAL ORAL
     Route: 048
  2. ACETAMINOPHEN W/DIPHENHYDRAMINE HYDROCHLORIDE) [Suspect]
     Indication: DRUG USE FOR UNKNOWN INDICATION
     Dosage: 385 TABLETS TOTAL ORAL
     Route: 048
  3. ALPRAZOLAM [Suspect]
     Indication: DRUG USE FOR UNKNOWN INDICATION
     Dosage: 480 TOTAL ORAL
     Route: 048
  4. RISPERIDONE [Suspect]
     Indication: DRUG USE FOR UNKNOWN INDICATION
     Dosage: 9 TOTAL ORAL
     Route: 048
  5. FLUVOXAMINE 100 MG [Suspect]
     Indication: DRUG USE FOR UNKNOWN INDICATION
     Dosage: 134 TOTAL ORAL
     Route: 048

REACTIONS (10)
  - BLOOD PRESSURE DECREASED [None]
  - BUNDLE BRANCH BLOCK LEFT [None]
  - COMPLETED SUICIDE [None]
  - LOSS OF CONSCIOUSNESS [None]
  - METABOLIC ACIDOSIS [None]
  - MULTIPLE DRUG OVERDOSE INTENTIONAL [None]
  - MYDRIASIS [None]
  - POISONING DELIBERATE [None]
  - SINUS BRADYCARDIA [None]
  - UNRESPONSIVE TO STIMULI [None]
